FAERS Safety Report 13928514 (Version 1)
Quarter: 2017Q3

REPORT INFORMATION
  Report Type: Spontaneous
  Country: US (occurrence: US)
  Receive Date: 20170901
  Receipt Date: 20170901
  Transmission Date: 20171127
  Serious: Yes (Other)
  Sender: FDA-Public Use
  Company Number: US-TEVA-802579USA

PATIENT
  Age: 14 Year
  Sex: Male

DRUGS (9)
  1. PEGASPARGASE [Concomitant]
     Active Substance: PEGASPARGASE
     Indication: MALIGNANT HISTIOCYTOSIS
     Route: 065
  2. CYTARABINE. [Concomitant]
     Active Substance: CYTARABINE
     Indication: MALIGNANT HISTIOCYTOSIS
     Route: 065
  3. METHOTREXATE. [Concomitant]
     Active Substance: METHOTREXATE
     Indication: MALIGNANT HISTIOCYTOSIS
     Route: 065
  4. CARBOPLATIN. [Suspect]
     Active Substance: CARBOPLATIN
     Indication: MALIGNANT HISTIOCYTOSIS
     Route: 065
  5. MERCAPTOPURINE. [Concomitant]
     Active Substance: MERCAPTOPURINE
     Indication: MALIGNANT HISTIOCYTOSIS
     Route: 065
  6. ETOPOSIDE. [Suspect]
     Active Substance: ETOPOSIDE
     Indication: MALIGNANT HISTIOCYTOSIS
     Route: 065
  7. VINCRISTINE [Concomitant]
     Active Substance: VINCRISTINE
     Indication: MALIGNANT HISTIOCYTOSIS
     Route: 065
  8. IFOSFAMIDE. [Suspect]
     Active Substance: IFOSFAMIDE
     Indication: MALIGNANT HISTIOCYTOSIS
     Route: 065
  9. CYCLOPHOSPHAMIDE. [Concomitant]
     Active Substance: CYCLOPHOSPHAMIDE
     Indication: MALIGNANT HISTIOCYTOSIS
     Route: 065

REACTIONS (4)
  - Pancytopenia [Unknown]
  - Thrombosis [Unknown]
  - Acute kidney injury [Unknown]
  - Sepsis [Unknown]
